FAERS Safety Report 15838324 (Version 3)
Quarter: 2019Q1

REPORT INFORMATION
  Report Type: Report from Study
  Country: None (occurrence: NL)
  Receive Date: 20190117
  Receipt Date: 20190301
  Transmission Date: 20190417
  Serious: Yes (Death, Life-Threatening)
  Sender: FDA-Public Use
  Company Number: NL-ABBVIE-19S-114-2627841-00

PATIENT
  Age: 77 Year
  Sex: Female

DRUGS (1)
  1. DUODOPA [Suspect]
     Active Substance: CARBIDOPA\LEVODOPA
     Indication: PARKINSON^S DISEASE
     Route: 050
     Dates: start: 20171106

REACTIONS (3)
  - Therapy cessation [Not Recovered/Not Resolved]
  - Parkinson^s disease [Fatal]
  - Sedative therapy [Fatal]

NARRATIVE: CASE EVENT DATE: 20190111
